FAERS Safety Report 9002241 (Version 1)
Quarter: 2013Q1

REPORT INFORMATION
  Report Type: Spontaneous
  Country: US (occurrence: US)
  Receive Date: 20130107
  Receipt Date: 20130107
  Transmission Date: 20140127
  Serious: Yes (Other)
  Sender: FDA-Public Use
  Company Number: US-ASTELLAS-2012US012385

PATIENT
  Sex: Male

DRUGS (1)
  1. XTANDI [Suspect]
     Indication: PROSTATE CANCER
     Dosage: 160 MG, UID/QD
     Route: 048
     Dates: start: 201211, end: 2012

REACTIONS (4)
  - Intestinal obstruction [Unknown]
  - Disorientation [Unknown]
  - Abdominal discomfort [Unknown]
  - Insomnia [Unknown]
